FAERS Safety Report 8179892-9 (Version None)
Quarter: 2012Q1

REPORT INFORMATION
  Report Type: 
  Country: None (occurrence: None)
  Receive Date: 20120302
  Receipt Date: 20120224
  Transmission Date: 20120608
  Serious: Yes (Other)
  Sender: FDA-Public Use
  Company Number: US-JNJFOC-20120213884

PATIENT
  Age: 77 Year
  Sex: Female
  Weight: 62.6 kg

DRUGS (4)
  1. NEOSPORIN ORIGINAL [Suspect]
     Indication: BLOOD BLISTER
     Dosage: ^LIGHT COVERING^ 30 TIMES
     Route: 061
     Dates: start: 20120110, end: 20120210
  2. EVISTA [Concomitant]
     Indication: NEOPLASM PROPHYLAXIS
     Dosage: FOR THREE YEARS
     Route: 065
     Dates: start: 20090101
  3. VESICARE [Concomitant]
     Indication: INCONTINENCE
     Dosage: FOR TEN YEARS
     Route: 065
     Dates: start: 20020101
  4. EVISTA [Concomitant]
     Indication: OSTEOPOROSIS
     Dosage: FOR THREE YEARS
     Route: 065
     Dates: start: 20090101

REACTIONS (4)
  - DRUG INEFFECTIVE [None]
  - INFECTION [None]
  - SCAB [None]
  - OFF LABEL USE [None]
